FAERS Safety Report 7717334-5 (Version None)
Quarter: 2011Q3

REPORT INFORMATION
  Report Type: 
  Country: None (occurrence: None)
  Receive Date: 20110822
  Receipt Date: 20110506
  Transmission Date: 20111222
  Serious: Yes (Hospitalization)
  Sender: FDA-Public Use
  Company Number: SP03692

PATIENT
  Age: 32 Year
  Sex: Female

DRUGS (2)
  1. APRISO [Suspect]
     Indication: COLITIS ULCERATIVE
     Dosage: 1.5 GM (1.5 GM, 1 IN 1 D), ORAL
     Route: 048
     Dates: start: 20110217
  2. OMEPRAZOLE [Concomitant]

REACTIONS (1)
  - PANCREATITIS [None]
